FAERS Safety Report 7318524-6 (Version None)
Quarter: 2011Q1

REPORT INFORMATION
  Report Type: 
  Country: None (occurrence: None)
  Receive Date: 20110228
  Receipt Date: 20100810
  Transmission Date: 20110831
  Serious: Yes (Other)
  Sender: FDA-Public Use
  Company Number: US-BAYER-201012520NA

PATIENT
  Sex: Female
  Weight: 104.31 kg

DRUGS (9)
  1. TRIAMTERENE [Concomitant]
     Indication: DIURETIC THERAPY
     Dosage: UNK
     Dates: start: 20090501
  2. IBUPROFEN [Concomitant]
     Indication: PAIN
     Dosage: 800 MG, UNK
     Dates: start: 20081019
  3. METHYLDOPA [Concomitant]
     Indication: HYPERTENSION
     Dosage: UNK
     Dates: start: 20081027
  4. LABETALOL HCL [Concomitant]
     Indication: HYPERTENSION
     Dosage: UNK
     Dates: start: 20081110
  5. OCELLA [Suspect]
     Indication: CONTRACEPTION
     Dosage: UNK
     Dates: start: 20081203, end: 20091230
  6. ALBUTEROL [Concomitant]
     Indication: ASTHMA
  7. PROPOXYPHENE HYDROCHLORIDE [Concomitant]
     Indication: PAIN
     Dosage: UNK
     Dates: start: 20081019
  8. NIFEDICAL [Concomitant]
     Indication: HYPERTENSION
     Dosage: UNK
     Dates: start: 20081119
  9. NITROFURANTOIN [Concomitant]
     Indication: URINARY TRACT INFECTION
     Dosage: UNK
     Dates: start: 20080831

REACTIONS (7)
  - FLATULENCE [None]
  - DIARRHOEA [None]
  - CHOLECYSTITIS [None]
  - ABDOMINAL PAIN UPPER [None]
  - NAUSEA [None]
  - ABDOMINAL PAIN [None]
  - ABDOMINAL DISTENSION [None]
